FAERS Safety Report 10052402 (Version 1)
Quarter: 2014Q2

REPORT INFORMATION
  Report Type: Spontaneous
  Country: FR (occurrence: FR)
  Receive Date: 20140402
  Receipt Date: 20140402
  Transmission Date: 20141212
  Serious: Yes (Hospitalization)
  Sender: FDA-Public Use
  Company Number: FR-JNJFOC-20140316273

PATIENT
  Age: 62 Year
  Sex: Male

DRUGS (9)
  1. XARELTO [Suspect]
     Indication: CEREBROVASCULAR ACCIDENT PROPHYLAXIS
     Route: 048
     Dates: start: 20140114, end: 20140212
  2. XARELTO [Suspect]
     Indication: ATRIAL FIBRILLATION
     Route: 048
     Dates: start: 20140114, end: 20140212
  3. KARDEGIC [Suspect]
     Indication: MYOCARDIAL ISCHAEMIA
     Route: 048
  4. CRESTOR [Concomitant]
     Indication: HYPERLIPIDAEMIA
     Route: 048
  5. DIAMICRON [Concomitant]
     Indication: DIABETES MELLITUS
     Route: 048
  6. VELMETIA [Concomitant]
     Indication: DIABETES MELLITUS
     Route: 048
  7. CORDARONE [Concomitant]
     Indication: ATRIAL FIBRILLATION
     Route: 048
  8. BISOPROLOL HEMIFUMARATE [Concomitant]
     Indication: ATRIAL FIBRILLATION
     Route: 048
  9. COTAREG [Concomitant]
     Indication: MYOCARDIAL ISCHAEMIA
     Route: 048

REACTIONS (2)
  - Intracardiac thrombus [Not Recovered/Not Resolved]
  - Drug ineffective [Not Recovered/Not Resolved]
